FAERS Safety Report 7493522-0 (Version None)
Quarter: 2011Q2

REPORT INFORMATION
  Report Type: 
  Country: None (occurrence: None)
  Receive Date: 20110520
  Receipt Date: 20110517
  Transmission Date: 20111010
  Serious: Yes (Hospitalization, Other)
  Sender: FDA-Public Use
  Company Number: SE-PFIZER INC-2011105115

PATIENT
  Age: 85 Year
  Sex: Male

DRUGS (12)
  1. DOXAZOSIN MESYLATE [Suspect]
     Indication: HYPERTENSION
     Dosage: UNK
     Route: 048
     Dates: end: 20110322
  2. PAMOL [Concomitant]
     Dosage: 500 MG, UNK
  3. IMOVANE [Concomitant]
     Dosage: 5 MG, UNK
  4. NEORECORMON ^ROCHE^ [Concomitant]
     Dosage: UNK
  5. ATARAX [Concomitant]
     Dosage: 25 MG, UNK
  6. FUROSEMIDE [Suspect]
     Indication: NEPHROPATHY
     Dosage: 40 MG, 2X/DAY
     Route: 048
  7. POTASSIUM CHLORIDE [Suspect]
     Indication: NEPHROPATHY
     Dosage: UNK
     Route: 048
     Dates: end: 20110322
  8. LEVOTHYROXINE SODIUM [Concomitant]
     Dosage: 100 UG, UNK
  9. METOPROLOL TARTRATE [Suspect]
     Indication: HYPERTENSION
     Dosage: 50 MG, EVERY 24 HOURS
     Route: 048
  10. FELODIPINE [Suspect]
     Indication: HYPERTENSION
     Dosage: 5 MG, EVERY 24 HOURS
     Route: 048
  11. SODIUM BICARBONATE [Concomitant]
     Dosage: 1 G, UNK
  12. ETALPHA [Concomitant]
     Dosage: 0.5 MG, UNK

REACTIONS (3)
  - HYPERKALAEMIA [None]
  - BLOOD PRESSURE ORTHOSTATIC DECREASED [None]
  - SYNCOPE [None]
